FAERS Safety Report 4705587-7 (Version None)
Quarter: 2005Q2

REPORT INFORMATION
  Report Type: 
  Country: None (occurrence: None)
  Receive Date: 20050629
  Receipt Date: 20040827
  Transmission Date: 20051028
  Serious: Yes (Hospitalization)
  Sender: FDA-Public Use
  Company Number: 200418590GDDC

PATIENT
  Age: 62 Year
  Sex: Female
  Weight: 77.5 kg

DRUGS (3)
  1. FLUOROURACIL [Suspect]
     Indication: BREAST CANCER
     Dosage: 885 MG/DAY IV
     Route: 042
     Dates: start: 20040811, end: 20040811
  2. C SOLUTION FOR INFUSION [Suspect]
     Indication: BREAST CANCER
     Dosage: 177 MG/DAY IV
     Route: 042
     Dates: start: 20040811, end: 20040811
  3. CYCLOPHOSPHAMIDE [Suspect]
     Indication: BREAST CANCER
     Dosage: 885 MG/DAY IV
     Route: 042
     Dates: start: 20040811, end: 20040811

REACTIONS (2)
  - HYPOKALAEMIA [None]
  - NEUTROPENIA [None]
